FAERS Safety Report 6035971-3 (Version None)
Quarter: 2009Q1

REPORT INFORMATION
  Report Type: 
  Country: None (occurrence: None)
  Receive Date: 20090113
  Receipt Date: 20090106
  Transmission Date: 20090719
  Serious: Yes (Other)
  Sender: FDA-Public Use
  Company Number: BR-JNJFOC-20090101165

PATIENT
  Age: 27 Year
  Sex: Female
  Weight: 60 kg

DRUGS (3)
  1. ACETAMINOPHEN W/ CODEINE [Suspect]
     Indication: BACK PAIN
     Dosage: ACETAMINOPHEN 500 MG / CODEINE PHOSPHATE 30 MG.  3 TABLETS EVERY 8 HOURS
     Route: 048
  2. CONTRACEPTIVE NOS [Concomitant]
     Indication: MENSTRUAL DISORDER
     Route: 065
  3. CONTRACEPTIVE NOS [Concomitant]
     Indication: CONTRACEPTION
     Route: 065

REACTIONS (4)
  - HEART RATE DECREASED [None]
  - HYPOTENSION [None]
  - SEDATION [None]
  - SOMNOLENCE [None]
